FAERS Safety Report 22336530 (Version 1)
Quarter: 2023Q2

REPORT INFORMATION
  Report Type: Spontaneous
  Country: US (occurrence: US)
  Receive Date: 20230518
  Receipt Date: 20230518
  Transmission Date: 20230721
  Serious: Yes (Other)
  Sender: FDA-Public Use
  Company Number: US-STERISCIENCE B.V.-2022-ST-000422

PATIENT
  Age: 25 Year
  Sex: Male

DRUGS (12)
  1. ONDANSETRON [Suspect]
     Active Substance: ONDANSETRON
     Indication: Metabolic alkalosis
     Dosage: 4 MILLIGRAM; INJECTION
     Route: 042
  2. ONDANSETRON [Suspect]
     Active Substance: ONDANSETRON
     Indication: Altered state of consciousness
  3. MIDAZOLAM [Suspect]
     Active Substance: MIDAZOLAM
     Indication: Metabolic alkalosis
     Dosage: 1 MILLIGRAM; INJECTION
     Route: 042
  4. MIDAZOLAM [Suspect]
     Active Substance: MIDAZOLAM
     Indication: Altered state of consciousness
  5. SODIUM CHLORIDE [Suspect]
     Active Substance: SODIUM CHLORIDE
     Indication: Altered state of consciousness
     Dosage: UNKNOWN
     Route: 065
  6. SODIUM CHLORIDE [Suspect]
     Active Substance: SODIUM CHLORIDE
     Indication: Metabolic alkalosis
  7. SODIUM BICARBONATE [Suspect]
     Active Substance: SODIUM BICARBONATE
     Indication: Metabolic alkalosis
     Dosage: UNK
     Route: 065
  8. SODIUM BICARBONATE [Suspect]
     Active Substance: SODIUM BICARBONATE
     Indication: Altered state of consciousness
  9. LEVETIRACETAM [Suspect]
     Active Substance: LEVETIRACETAM
     Indication: Altered state of consciousness
     Dosage: 1 GRAM; INJECTION
     Route: 042
  10. LEVETIRACETAM [Suspect]
     Active Substance: LEVETIRACETAM
     Indication: Metabolic alkalosis
  11. RABEPRAZOLE [Suspect]
     Active Substance: RABEPRAZOLE
     Indication: Metabolic alkalosis
     Dosage: 20 MILLIGRAM
     Route: 042
  12. RABEPRAZOLE [Suspect]
     Active Substance: RABEPRAZOLE
     Indication: Altered state of consciousness

REACTIONS (1)
  - Drug ineffective for unapproved indication [Unknown]
